FAERS Safety Report 18520555 (Version 1)
Quarter: 2020Q4

REPORT INFORMATION
  Report Type: Spontaneous
  Country: GB (occurrence: GB)
  Receive Date: 20201119
  Receipt Date: 20201119
  Transmission Date: 20210114
  Serious: Yes (Hospitalization)
  Sender: FDA-Public Use
  Company Number: GB-TEVA-2020-GB-1849562

PATIENT
  Age: 73 Year
  Sex: Female

DRUGS (6)
  1. ADCAL-D3 [Concomitant]
     Active Substance: CALCIUM CARBONATE\CHOLECALCIFEROL
  2. MANEVAC [Suspect]
     Active Substance: HERBALS
  3. PROMETHAZINE HYDROCHLORIDE. [Concomitant]
     Active Substance: PROMETHAZINE HYDROCHLORIDE
     Dosage: 10 MG
  4. LACTULOSE. [Suspect]
     Active Substance: LACTULOSE
     Dosage: 30 ML DAILY;
  5. NITROFURANTOIN. [Suspect]
     Active Substance: NITROFURANTOIN
     Dates: start: 20200910, end: 20201020
  6. DOCUSATE [Suspect]
     Active Substance: DOCUSATE
     Dosage: 400 MG

REACTIONS (1)
  - Liver function test increased [Recovering/Resolving]
